FAERS Safety Report 23334049 (Version 1)
Quarter: 2023Q4

REPORT INFORMATION
  Report Type: Spontaneous
  Country: CA (occurrence: CA)
  Receive Date: 20231223
  Receipt Date: 20231223
  Transmission Date: 20240110
  Serious: Yes (Life-Threatening, Hospitalization, Other)
  Sender: FDA-Public Use
  Company Number: None

PATIENT
  Age: 51 Year
  Sex: Female
  Weight: 51 kg

DRUGS (7)
  1. CISPLATIN [Suspect]
     Active Substance: CISPLATIN
     Indication: Squamous cell carcinoma
     Route: 042
  2. DEXAMETHASONE [Concomitant]
     Active Substance: DEXAMETHASONE
     Route: 065
  3. EMEND [Concomitant]
     Active Substance: APREPITANT
  4. GABAPENTIN [Concomitant]
     Active Substance: GABAPENTIN
  5. METOCLOPRAMIDE [Concomitant]
     Active Substance: METOCLOPRAMIDE
  6. NYSTATIN [Concomitant]
     Active Substance: NYSTATIN
  7. ONDANSETRON [Concomitant]
     Active Substance: ONDANSETRON

REACTIONS (6)
  - Acute kidney injury [Recovering/Resolving]
  - Bacteraemia [Recovering/Resolving]
  - Blood culture positive [Recovering/Resolving]
  - Febrile neutropenia [Recovering/Resolving]
  - Parainfluenzae virus infection [Recovering/Resolving]
  - Streptococcus test positive [Recovering/Resolving]
